FAERS Safety Report 8816623 (Version 1)
Quarter: 2012Q4

REPORT INFORMATION
  Report Type: Spontaneous
  Country: US (occurrence: None)
  Receive Date: 20121001
  Receipt Date: 20121001
  Transmission Date: 20130627
  Serious: Yes (Other)
  Sender: FDA-Public Use
  Company Number: None

PATIENT
  Sex: Female

DRUGS (1)
  1. LOVASTATIN [Suspect]
     Indication: HIGH CHOLESTEROL
     Dosage: 40 MG 1 TAB AT BEDTIME PO
     Route: 048

REACTIONS (2)
  - Hepatitis C [None]
  - Liver injury [None]
